FAERS Safety Report 6412768-3 (Version None)
Quarter: 2009Q4

REPORT INFORMATION
  Report Type: 
  Country: None (occurrence: None)
  Receive Date: 20091023
  Receipt Date: 20091019
  Transmission Date: 20100525
  Serious: No
  Sender: FDA-Public Use
  Company Number: US-B.I. PHARMACEUTICALS,INC./RIDGEFIELD-2009-BP-03303BP

PATIENT
  Sex: Female

DRUGS (1)
  1. SPIRIVA [Suspect]
     Indication: SARCOIDOSIS
     Dosage: 18 MCG
     Route: 055
     Dates: start: 20070101

REACTIONS (3)
  - DYSPNOEA [None]
  - FATIGUE [None]
  - TONGUE COATED [None]
